FAERS Safety Report 7533511-0 (Version None)
Quarter: 2011Q2

REPORT INFORMATION
  Report Type: 
  Country: None (occurrence: None)
  Receive Date: 20110608
  Receipt Date: 20110526
  Transmission Date: 20111010
  Serious: Yes (Other)
  Sender: FDA-Public Use
  Company Number: US-UCBSA-029543

PATIENT
  Sex: Female
  Weight: 82.5 kg

DRUGS (4)
  1. PREDNISONE [Concomitant]
  2. AZULIFIDINE [Concomitant]
  3. CIMZIA [Suspect]
     Route: 058
  4. IMURAN [Concomitant]

REACTIONS (1)
  - HAEMANGIOMA OF SPLEEN [None]
